FAERS Safety Report 23855013 (Version 2)
Quarter: 2024Q2

REPORT INFORMATION
  Report Type: Spontaneous
  Country: US (occurrence: US)
  Receive Date: 20240514
  Receipt Date: 20240610
  Transmission Date: 20240715
  Serious: No
  Sender: FDA-Public Use
  Company Number: US-SA-SAC20240506000393

PATIENT
  Age: 17 Year
  Sex: Male
  Weight: 78.9 kg

DRUGS (4)
  1. DUPIXENT [Suspect]
     Active Substance: DUPILUMAB
     Indication: Dermatitis atopic
     Dosage: 300 MG, QOW
     Route: 058
     Dates: start: 20210430
  2. CORTISONE [Concomitant]
     Active Substance: CORTISONE
  3. XIPAMIDE [Concomitant]
     Active Substance: XIPAMIDE
  4. EUCRISA [Concomitant]
     Active Substance: CRISABOROLE

REACTIONS (4)
  - Anger [Recovering/Resolving]
  - Irritability [Recovering/Resolving]
  - Skin exfoliation [Unknown]
  - Intentional dose omission [Unknown]
